FAERS Safety Report 6575716-1 (Version None)
Quarter: 2010Q1

REPORT INFORMATION
  Report Type: 
  Country: None (occurrence: None)
  Receive Date: 20100209
  Receipt Date: 20100204
  Transmission Date: 20100710
  Serious: Yes (Disabling, Other)
  Sender: FDA-Public Use
  Company Number: GB-BRISTOL-MYERS SQUIBB COMPANY-13820873

PATIENT
  Age: 43 Year
  Sex: Male
  Weight: 94 kg

DRUGS (8)
  1. ATAZANAVIR [Suspect]
     Indication: HIV INFECTION
     Route: 048
     Dates: start: 20040101
  2. RITONAVIR [Suspect]
     Indication: HIV INFECTION
     Route: 048
     Dates: start: 20040101
  3. TRUVADA [Suspect]
     Indication: HIV INFECTION
     Route: 048
     Dates: start: 20040101
  4. DICLOFENAC [Concomitant]
     Indication: ARTHRALGIA
     Route: 048
     Dates: start: 20051201
  5. ECHINACEA [Concomitant]
     Route: 048
  6. SILDENAFIL CITRATE [Concomitant]
     Indication: ERECTILE DYSFUNCTION
     Route: 048
     Dates: start: 20051201
  7. PRAVASTATIN SODIUM [Concomitant]
     Indication: BLOOD CHOLESTEROL INCREASED
     Route: 048
  8. ACIDOPHILUS [Concomitant]

REACTIONS (1)
  - OSTEONECROSIS [None]
